FAERS Safety Report 5951294-2 (Version None)
Quarter: 2008Q4

REPORT INFORMATION
  Report Type: 
  Country: None (occurrence: None)
  Receive Date: 20081113
  Receipt Date: 20081110
  Transmission Date: 20090506
  Serious: Yes (Other)
  Sender: FDA-Public Use
  Company Number: FR-BAYER-200830093GPV

PATIENT

DRUGS (1)
  1. IZILOX [Suspect]
     Indication: SINUSITIS
     Route: 065
     Dates: start: 20081101

REACTIONS (2)
  - DIARRHOEA [None]
  - HAEMORRHAGE [None]
